FAERS Safety Report 9448815 (Version 1)
Quarter: 2013Q3

REPORT INFORMATION
  Report Type: Spontaneous
  Country: US (occurrence: US)
  Receive Date: 20130808
  Receipt Date: 20130808
  Transmission Date: 20140515
  Serious: Yes (Hospitalization)
  Sender: FDA-Public Use
  Company Number: US-BAYER-2013-094981

PATIENT
  Age: 27 Year
  Sex: Female
  Weight: 63.49 kg

DRUGS (7)
  1. YASMIN [Suspect]
  2. VICODIN [Concomitant]
     Dosage: 5/500, 1 TO 2 Q 4 P.R.N
  3. PHENERGAN [Concomitant]
  4. XANAX [Concomitant]
     Dosage: 0.5 TO 1 MG AS NEEDED
  5. BENZOYL PEROXIDE [Concomitant]
  6. LORTAB [Concomitant]
     Indication: PAIN
  7. ATIVAN [Concomitant]
     Indication: ANXIETY
     Dosage: AS NEEDED

REACTIONS (1)
  - Deep vein thrombosis [None]
